FAERS Safety Report 18195867 (Version 1)
Quarter: 2020Q3

REPORT INFORMATION
  Report Type: Spontaneous
  Country: US (occurrence: US)
  Receive Date: 20200825
  Receipt Date: 20200825
  Transmission Date: 20201103
  Serious: Yes (Other)
  Sender: FDA-Public Use
  Company Number: US-SA-2020SA221542

PATIENT

DRUGS (1)
  1. FLOMAX [Suspect]
     Active Substance: TAMSULOSIN HYDROCHLORIDE
     Indication: BENIGN PROSTATIC HYPERPLASIA
     Dosage: UNK

REACTIONS (14)
  - Heart rate decreased [Not Recovered/Not Resolved]
  - Dizziness [Not Recovered/Not Resolved]
  - Nasal congestion [Not Recovered/Not Resolved]
  - Asthenia [Not Recovered/Not Resolved]
  - Dysphonia [Not Recovered/Not Resolved]
  - Total lung capacity decreased [Not Recovered/Not Resolved]
  - Anxiety [Not Recovered/Not Resolved]
  - Inner ear disorder [Not Recovered/Not Resolved]
  - Cough [Not Recovered/Not Resolved]
  - Pneumonia [Not Recovered/Not Resolved]
  - Fall [Not Recovered/Not Resolved]
  - Gait disturbance [Not Recovered/Not Resolved]
  - Hypotension [Not Recovered/Not Resolved]
  - Muscular weakness [Not Recovered/Not Resolved]

NARRATIVE: CASE EVENT DATE: 202002
